FAERS Safety Report 17413877 (Version 3)
Quarter: 2021Q1

REPORT INFORMATION
  Report Type: Report from Study
  Country: BR (occurrence: BR)
  Receive Date: 20200213
  Receipt Date: 20210204
  Transmission Date: 20210419
  Serious: Yes (Other)
  Sender: FDA-Public Use
  Company Number: BR-JNJFOC-20200206625

PATIENT
  Age: 56 Year
  Sex: Female
  Weight: 83 kg

DRUGS (4)
  1. SIMPONI [Suspect]
     Active Substance: GOLIMUMAB
     Indication: RHEUMATOID ARTHRITIS
     Route: 058
     Dates: start: 20191101, end: 202001
  2. GLIFAGE [Concomitant]
     Active Substance: METFORMIN HYDROCHLORIDE
  3. LOSARTAN. [Concomitant]
     Active Substance: LOSARTAN
  4. PREDNISONE. [Suspect]
     Active Substance: PREDNISONE
     Indication: PRODUCT USED FOR UNKNOWN INDICATION
     Route: 065

REACTIONS (3)
  - Arthralgia [Unknown]
  - Tuberculosis [Unknown]
  - Alopecia [Unknown]

NARRATIVE: CASE EVENT DATE: 202002
